FAERS Safety Report 7921134-0 (Version None)
Quarter: 2011Q4

REPORT INFORMATION
  Report Type: 
  Country: None (occurrence: None)
  Receive Date: 20111117
  Receipt Date: 20111110
  Transmission Date: 20120403
  Serious: Yes (Other)
  Sender: FDA-Public Use
  Company Number: PHHY2011GB099231

PATIENT

DRUGS (6)
  1. HYDROMOL [Interacting]
  2. LOSARTAN [Concomitant]
  3. WARFARIN SODIUM [Suspect]
  4. SIMVASTATIN [Concomitant]
  5. LANSOPRAZOLE [Concomitant]
  6. BISOPROLOL FUMARATE [Concomitant]

REACTIONS (2)
  - DRUG INTERACTION [None]
  - INTERNATIONAL NORMALISED RATIO INCREASED [None]
